FAERS Safety Report 23708014 (Version 1)
Quarter: 2024Q2

REPORT INFORMATION
  Report Type: Spontaneous
  Country: US (occurrence: US)
  Receive Date: 20240404
  Receipt Date: 20240404
  Transmission Date: 20240715
  Serious: Yes (Other)
  Sender: FDA-Public Use
  Company Number: US-STRIDES ARCOLAB LIMITED-2024SP003869

PATIENT
  Age: 82 Year
  Sex: Female

DRUGS (7)
  1. CINACALCET [Suspect]
     Active Substance: CINACALCET
     Indication: Hypercalcaemia
     Dosage: 60 MILLIGRAM, QD
     Route: 065
  2. CINACALCET [Suspect]
     Active Substance: CINACALCET
     Dosage: 60 MILLIGRAM, BID
     Route: 065
  3. CINACALCET [Suspect]
     Active Substance: CINACALCET
     Dosage: 90 MILLIGRAM, BID
     Route: 065
  4. CALCITONIN [Suspect]
     Active Substance: CALCITONIN
     Indication: Hypercalcaemia
     Dosage: 200 MILLIGRAM (ON DAY?1)
     Route: 058
  5. CALCITONIN [Suspect]
     Active Substance: CALCITONIN
     Dosage: 200 MILLIGRAM, BID (FOR 2?DAYS)
     Route: 058
  6. PAMIDRONATE [Suspect]
     Active Substance: PAMIDRONATE DISODIUM
     Indication: Hypercalcaemia
     Dosage: 30 MILLIGRAM
     Route: 065
  7. DEXAMETHASONE [Suspect]
     Active Substance: DEXAMETHASONE
     Indication: Hypercalcaemia
     Dosage: 6 MILLIGRAM, QD
     Route: 065

REACTIONS (1)
  - Drug ineffective [Unknown]
